FAERS Safety Report 5370356-4 (Version None)
Quarter: 2007Q2

REPORT INFORMATION
  Report Type: 
  Country: None (occurrence: None)
  Receive Date: 20070626
  Receipt Date: 20070621
  Transmission Date: 20071010
  Serious: Yes (Hospitalization)
  Sender: FDA-Public Use
  Company Number: FR-BRISTOL-MYERS SQUIBB COMPANY-13823489

PATIENT
  Age: 50 Year
  Sex: Female

DRUGS (6)
  1. ELISOR TABS 20 MG [Suspect]
     Route: 048
  2. MEPRONIZINE [Suspect]
  3. ASPIRIN [Suspect]
     Dates: end: 20070303
  4. AOTAL [Suspect]
  5. AMLODIPINE [Suspect]
  6. DETENSIEL [Suspect]

REACTIONS (3)
  - COGNITIVE DISORDER [None]
  - MELAENA [None]
  - SUBDURAL HAEMATOMA [None]
